FAERS Safety Report 13845887 (Version 1)
Quarter: 2017Q3

REPORT INFORMATION
  Report Type: Spontaneous
  Country: US (occurrence: US)
  Receive Date: 20170808
  Receipt Date: 20170808
  Transmission Date: 20171127
  Serious: No
  Sender: FDA-Public Use
  Company Number: US-ROCHE-704321

PATIENT
  Sex: Female

DRUGS (1)
  1. BONIVA [Suspect]
     Active Substance: IBANDRONATE SODIUM
     Indication: PRODUCT USED FOR UNKNOWN INDICATION
     Dosage: START DATE REPORTED AS MAY (YEAR NOT SPECIFIED)
     Route: 065

REACTIONS (4)
  - Musculoskeletal stiffness [Unknown]
  - Chest pain [Unknown]
  - Back pain [Unknown]
  - Nausea [Unknown]
